FAERS Safety Report 7474097-9 (Version None)
Quarter: 2011Q2

REPORT INFORMATION
  Report Type: 
  Country: None (occurrence: None)
  Receive Date: 20110511
  Receipt Date: 20110509
  Transmission Date: 20111010
  Serious: Yes (Death, Other)
  Sender: FDA-Public Use
  Company Number: US-PFIZER INC-2011099088

PATIENT
  Sex: Male

DRUGS (1)
  1. CHANTIX [Suspect]
     Dosage: UNK
     Dates: start: 20080801

REACTIONS (4)
  - SUICIDAL IDEATION [None]
  - DEPRESSION [None]
  - DEATH [None]
  - ANXIETY [None]
